FAERS Safety Report 8515106-5 (Version None)
Quarter: 2012Q3

REPORT INFORMATION
  Report Type: 
  Country: None (occurrence: None)
  Receive Date: 20120717
  Receipt Date: 20080621
  Transmission Date: 20120928
  Serious: Yes (Other)
  Sender: FDA-Public Use
  Company Number: CO-PFIZER INC-2012168084

PATIENT
  Age: 90 Year
  Sex: Female

DRUGS (13)
  1. OLMESARTAN MEDOXOMIL AND HYDROCHLOROTHIZIDE [Suspect]
     Indication: HYPERTENSION
     Dosage: [OLMESARTAN MEDOXOMIL 20MG/ HYDROCHLOROTHIAZIDE 12.5 MG], EVERY 12 HOURS
     Dates: start: 20080621
  2. LIPITOR [Suspect]
     Dosage: 10 MG, 1X/DAY
     Dates: start: 20090928
  3. INSULIN ZINC SUSPENSION (CRYSTALLINE) [Concomitant]
     Dosage: 10 IU, EVERY 12 HOURS
     Dates: start: 20080621
  4. ISOSORBIDE DINITRATE [Concomitant]
     Dosage: 10 MG, 2X/DAY
     Dates: start: 20080621
  5. INSULIN ZINC SUSPENSION (CRYSTALLINE) [Concomitant]
     Dosage: 10 IU, EVERY 8 HOURS
     Dates: start: 20090928
  6. LOVASTATIN [Concomitant]
     Dosage: 20 MG, 1X/DAY
  7. METOPROLOL [Concomitant]
     Dosage: 50 MG, 2X/DAY
  8. INSULATARD NPH [Concomitant]
     Dosage: 15 IU, EVERY 12 HOURS
     Dates: start: 20080621
  9. WARFARIN SODIUM [Concomitant]
     Dosage: 5 MG, 1X/DAY
  10. LIPITOR [Suspect]
     Indication: DYSLIPIDAEMIA
     Dosage: 20MG/10 MG, EVERY 24 HOURS
     Dates: start: 20080621
  11. INSULATARD NPH [Concomitant]
     Dosage: 30 AND 20 IU, EVERY 12  HOURS
     Dates: start: 20090928
  12. DIGOXIN [Concomitant]
     Dosage: 0.25 MG, 1X/DAY
  13. ISOSORBIDE DINITRATE [Concomitant]
     Dosage: 10 MG, 3X/DAY
     Dates: start: 20090928

REACTIONS (5)
  - HYPERTRIGLYCERIDAEMIA [None]
  - GLYCOSURIA [None]
  - ANGINA PECTORIS [None]
  - DYSPNOEA EXERTIONAL [None]
  - PAIN [None]
